FAERS Safety Report 15296834 (Version 1)
Quarter: 2018Q3

REPORT INFORMATION
  Report Type: Spontaneous
  Country: US (occurrence: US)
  Receive Date: 20180820
  Receipt Date: 20180820
  Transmission Date: 20181010
  Serious: No
  Sender: FDA-Public Use
  Company Number: US-PFIZER INC-2018331117

PATIENT
  Age: 73 Year
  Sex: Male
  Weight: 66.22 kg

DRUGS (6)
  1. BABY ASPIRIN [Concomitant]
     Active Substance: ASPIRIN
     Dosage: 81MG ONCE A DAY BY MOUTH
     Route: 048
  2. LYRICA [Suspect]
     Active Substance: PREGABALIN
     Indication: SCIATIC NERVE INJURY
     Dosage: 4 DF, DAILY (TWO 75 MG CAPSULES IN THE MORNING AND TWO 75 MG CAPSULES AT NIGHT)
     Route: 048
     Dates: start: 201806
  3. LEVOTHYROXINE. [Concomitant]
     Active Substance: LEVOTHYROXINE
     Indication: THYROID DISORDER
     Dosage: 50MG ONCE A DAY
  4. OCUVITE [Concomitant]
     Active Substance: VITAMINS
     Indication: EYE DISORDER
     Dosage: UNK
  5. DULCOLAX NOS [Concomitant]
     Active Substance: BISACODYL OR DOCUSATE SODIUM
     Indication: CONSTIPATION
     Dosage: 25MG ONCE A DAY AS NEEDED (FOUR TIMES A WEEK)
  6. FIBERCON [Concomitant]
     Active Substance: CALCIUM POLYCARBOPHIL
     Indication: CONSTIPATION
     Dosage: ONE TABLET DAILY

REACTIONS (5)
  - Vision blurred [Unknown]
  - Drug effect incomplete [Unknown]
  - Feeling abnormal [Unknown]
  - Dizziness [Unknown]
  - Weight increased [Unknown]
